FAERS Safety Report 10752313 (Version 4)
Quarter: 2015Q1

REPORT INFORMATION
  Report Type: Spontaneous
  Country: US (occurrence: US)
  Receive Date: 20150130
  Receipt Date: 20150224
  Transmission Date: 20150721
  Serious: Yes (Death, Hospitalization, Other)
  Sender: FDA-Public Use
  Company Number: US-BAXTER-2015BAX004992

PATIENT
  Age: 76 Year
  Sex: Male

DRUGS (1)
  1. DIANEAL LOW CALCIUM PERITONEAL DIALYSIS SOLUTION WITH DEXTROSE [Suspect]
     Active Substance: CALCIUM CHLORIDE\DEXTROSE\MAGNESIUM CHLORIDE\SODIUM CHLORIDE\SODIUM LACTATE
     Indication: PERITONEAL DIALYSIS
     Route: 033
     Dates: end: 20150129

REACTIONS (6)
  - Neoplasm malignant [Unknown]
  - Gastric disorder [Unknown]
  - Multimorbidity [Unknown]
  - Intestinal obstruction [Unknown]
  - Myocardial infarction [Fatal]
  - Multi-organ failure [Unknown]

NARRATIVE: CASE EVENT DATE: 20150116
